FAERS Safety Report 4285374-7 (Version None)
Quarter: 2004Q1

REPORT INFORMATION
  Report Type: 
  Country: None (occurrence: None)
  Receive Date: 20040202
  Receipt Date: 20040119
  Transmission Date: 20041129
  Serious: Yes (Hospitalization)
  Sender: FDA-Public Use
  Company Number: 2004003797

PATIENT
  Age: 48 Year
  Sex: Female

DRUGS (8)
  1. RELPAX [Suspect]
     Indication: MIGRAINE
     Dosage: 80 MG DAILY, ORAL
     Route: 048
     Dates: start: 20031029, end: 20031112
  2. IBUPROFEN [Suspect]
     Indication: INTERVERTEBRAL DISC PROTRUSION
     Dosage: 1.2 GRAM DAILY, ORAL
     Route: 048
     Dates: start: 20031029, end: 20031105
  3. OMEPRAZOLE MAGNESIUM (OMEPRAZOLE MAGNESIUM) [Concomitant]
  4. DEXAMETHASONE [Concomitant]
  5. TRAMADOL HCL [Concomitant]
  6. TIZANIDINE HCL [Concomitant]
  7. ESCITALOPRAM (ESCITALOPRAM) [Concomitant]
  8. PARACETAMOL (PARACETAMOL) [Concomitant]

REACTIONS (6)
  - ABDOMINAL PAIN [None]
  - COLITIS [None]
  - CROHN'S DISEASE [None]
  - HAEMATOCHEZIA [None]
  - HAEMORRHOIDS [None]
  - ISCHAEMIA [None]
